FAERS Safety Report 6901056-4 (Version None)
Quarter: 2010Q3

REPORT INFORMATION
  Report Type: 
  Country: None (occurrence: None)
  Receive Date: 20100730
  Receipt Date: 20100720
  Transmission Date: 20110219
  Serious: Yes (Other)
  Sender: FDA-Public Use
  Company Number: DSU-2010-03515

PATIENT
  Sex: Female

DRUGS (1)
  1. ALMETEC-CO (HYDROCHLOROTHIAZIDE, OLMESARTAN MEDOXOMIL)(TABLET)(HYDROCH [Suspect]
     Indication: HYPERTENSION
     Dosage: PER ORAL
     Route: 048

REACTIONS (1)
  - QUADRIPARESIS [None]
